FAERS Safety Report 14400719 (Version 5)
Quarter: 2018Q1

REPORT INFORMATION
  Report Type: Report from Study
  Country: BE (occurrence: BE)
  Receive Date: 20180117
  Receipt Date: 20180308
  Transmission Date: 20180509
  Serious: Yes (Hospitalization, Other)
  Sender: FDA-Public Use
  Company Number: BE-BEH-2018086773

PATIENT
  Age: 8 Year
  Sex: Male

DRUGS (2)
  1. HIZENTRA [Suspect]
     Active Substance: HUMAN IMMUNOGLOBULIN G
     Indication: PRIMARY IMMUNODEFICIENCY SYNDROME
     Dosage: 4 G, QW, 10ML LEFT ABDOMEN, 10ML RIGHT ABDOMEN
     Route: 058
     Dates: start: 20180108
  2. HIZENTRA [Suspect]
     Active Substance: HUMAN IMMUNOGLOBULIN G
     Dosage: UNK
     Route: 058
     Dates: start: 20180113, end: 20180113

REACTIONS (6)
  - Lymphadenopathy [Recovering/Resolving]
  - Localised oedema [Recovering/Resolving]
  - Injection site pain [Recovering/Resolving]
  - Soft tissue inflammation [Recovering/Resolving]
  - Gastrointestinal infection [Recovering/Resolving]
  - Capillary disorder [Recovering/Resolving]

NARRATIVE: CASE EVENT DATE: 20180109
